FAERS Safety Report 19129588 (Version 2)
Quarter: 2021Q2

REPORT INFORMATION
  Report Type: Report from Study
  Country: MX (occurrence: MX)
  Receive Date: 20210413
  Receipt Date: 20210513
  Transmission Date: 20210717
  Serious: Yes (Death)
  Sender: FDA-Public Use
  Company Number: NVSC2021MX082699

PATIENT
  Sex: Male
  Weight: 67 kg

DRUGS (2)
  1. VOTRIENT [Suspect]
     Active Substance: PAZOPANIB HYDROCHLORIDE
     Indication: BONE CANCER
  2. VOTRIENT [Suspect]
     Active Substance: PAZOPANIB HYDROCHLORIDE
     Indication: RENAL CANCER
     Dosage: 1 DF, BID (200 MG TABLET)
     Route: 048
     Dates: start: 202101, end: 202102

REACTIONS (2)
  - Chronic kidney disease [Fatal]
  - Product prescribing error [Unknown]
